FAERS Safety Report 7896936-X (Version None)
Quarter: 2011Q4

REPORT INFORMATION
  Report Type: 
  Country: None (occurrence: None)
  Receive Date: 20111107
  Receipt Date: 20111030
  Transmission Date: 20120403
  Serious: Yes (Other)
  Sender: FDA-Public Use
  Company Number: US-BAYER-2011-105747

PATIENT

DRUGS (1)
  1. ALEVE (CAPLET) [Suspect]
     Dosage: ONLY HALF PILL
     Route: 048

REACTIONS (1)
  - GASTRIC HAEMORRHAGE [None]
